FAERS Safety Report 4971706-0 (Version None)
Quarter: 2006Q2

REPORT INFORMATION
  Report Type: 
  Country: None (occurrence: None)
  Receive Date: 20060413
  Receipt Date: 20060324
  Transmission Date: 20061013
  Serious: Yes (Hospitalization)
  Sender: FDA-Public Use
  Company Number: PHBS2006NL04496

PATIENT
  Age: 64 Year
  Sex: Male

DRUGS (8)
  1. CARBAMAZEPINE [Suspect]
     Indication: EPILEPSY
     Dosage: 400 MG/DAY
     Route: 065
  2. AMIODARONE HCL [Suspect]
     Dosage: 200 MG, TID
     Route: 065
     Dates: start: 20021215
  3. AMIODARONE HCL [Suspect]
     Dosage: 200 MG, BID
     Route: 065
  4. AMIODARONE HCL [Suspect]
     Dosage: 200 MG, QW
     Route: 065
     Dates: end: 20030215
  5. EMCOR [Concomitant]
     Dosage: 2.5 MG, QD
     Route: 065
  6. COVERSYL [Concomitant]
     Dosage: 4 MG, QD
     Route: 065
  7. NITROREGAN [Concomitant]
     Indication: INSOMNIA
     Dosage: 0.5 TABLET, QD
     Route: 048
  8. ACENOCOUMAROL [Concomitant]

REACTIONS (5)
  - ANTICONVULSANT DRUG LEVEL INCREASED [None]
  - DRUG INTERACTION [None]
  - GAIT DISTURBANCE [None]
  - MALAISE [None]
  - SPEECH DISORDER [None]
